FAERS Safety Report 9115481 (Version 1)
Quarter: 2013Q1

REPORT INFORMATION
  Report Type: Spontaneous
  Country: US (occurrence: US)
  Receive Date: 20130225
  Receipt Date: 20130225
  Transmission Date: 20140127
  Serious: No
  Sender: FDA-Public Use
  Company Number: US-ENDO PHARMACEUTICALS INC.-FORT20120144

PATIENT
  Sex: Male

DRUGS (3)
  1. FORTESTA [Suspect]
     Indication: HORMONE REPLACEMENT THERAPY
     Dosage: UNK
     Route: 061
     Dates: start: 2011, end: 2011
  2. FORTESTA [Suspect]
     Route: 061
     Dates: start: 201203, end: 20120508
  3. FORTESTA [Suspect]
     Route: 061
     Dates: start: 20120509

REACTIONS (3)
  - Asthenia [Not Recovered/Not Resolved]
  - Blood testosterone decreased [Not Recovered/Not Resolved]
  - Fatigue [Not Recovered/Not Resolved]
